FAERS Safety Report 19603650 (Version 1)
Quarter: 2021Q3

REPORT INFORMATION
  Report Type: Other
  Country: US (occurrence: US)
  Receive Date: 20210723
  Receipt Date: 20210723
  Transmission Date: 20211014
  Serious: Yes (Death, Other)
  Sender: FDA-Public Use
  Company Number: US-APOTEX-2021AP022750

PATIENT
  Age: 61 Year

DRUGS (2)
  1. ZANTAC [Suspect]
     Active Substance: RANITIDINE HYDROCHLORIDE
     Indication: DYSPEPSIA
     Dosage: OTHER (3X/DAY)
     Route: 065
     Dates: start: 200001, end: 201801
  2. RANITIDINE TABLETS [Suspect]
     Active Substance: RANITIDINE HYDROCHLORIDE
     Indication: DYSPEPSIA
     Dosage: OTHER (3X/DAY)
     Route: 065
     Dates: start: 200001, end: 201801

REACTIONS (3)
  - Oesophageal carcinoma [Fatal]
  - Colorectal cancer [Fatal]
  - Skin cancer [Fatal]

NARRATIVE: CASE EVENT DATE: 20160101
